FAERS Safety Report 18453492 (Version 3)
Quarter: 2022Q1

REPORT INFORMATION
  Report Type: Report from Study
  Country: AT (occurrence: AT)
  Receive Date: 20201102
  Receipt Date: 20220302
  Transmission Date: 20220423
  Serious: Yes (Other)
  Sender: FDA-Public Use
  Company Number: AT-AMGEN-AUTNI2020176339

PATIENT
  Age: 75 Year
  Sex: Male
  Weight: 66 kg

DRUGS (11)
  1. PANITUMUMAB [Suspect]
     Active Substance: PANITUMUMAB
     Indication: Colorectal cancer metastatic
     Dosage: 398 MILLIGRAM
     Route: 042
     Dates: start: 20200909
  2. PANITUMUMAB [Suspect]
     Active Substance: PANITUMUMAB
     Dosage: 394 MILLIGRAM
     Route: 042
     Dates: start: 20200923
  3. PANITUMUMAB [Suspect]
     Active Substance: PANITUMUMAB
     Dosage: 396 MILLIGRAM
     Route: 042
     Dates: start: 20201007
  4. LEUCOVORIN [Suspect]
     Active Substance: LEUCOVORIN
     Indication: Colorectal cancer metastatic
     Dosage: 700 MILLIGRAM
     Route: 065
     Dates: start: 20200826
  5. FLUOROURACIL [Suspect]
     Active Substance: FLUOROURACIL
     Indication: Colorectal cancer metastatic
     Dosage: 700 MILLIGRAM
     Route: 040
     Dates: start: 20200826
  6. FLUOROURACIL [Suspect]
     Active Substance: FLUOROURACIL
     Dosage: 2818 MILLIGRAM
     Route: 042
     Dates: start: 20200826
  7. FLUOROURACIL [Suspect]
     Active Substance: FLUOROURACIL
     Dosage: 2807 MILLIGRAM
     Route: 042
     Dates: start: 20200909
  8. FLUOROURACIL [Suspect]
     Active Substance: FLUOROURACIL
     Dosage: 2800 MILLIGRAM
     Route: 042
     Dates: start: 20200923
  9. OXALIPLATIN [Suspect]
     Active Substance: OXALIPLATIN
     Indication: Colorectal cancer metastatic
     Dosage: 150 MILLIGRAM
     Route: 065
     Dates: start: 20200826
  10. OXALIPLATIN [Suspect]
     Active Substance: OXALIPLATIN
     Dosage: 149 MILLIGRAM
     Route: 065
     Dates: start: 20200909
  11. OXALIPLATIN [Suspect]
     Active Substance: OXALIPLATIN
     Dosage: 148 MILLIGRAM
     Route: 065
     Dates: start: 20200923

REACTIONS (1)
  - Skin reaction [Recovered/Resolved]

NARRATIVE: CASE EVENT DATE: 20201020
